FAERS Safety Report 8320106-4 (Version None)
Quarter: 2012Q2

REPORT INFORMATION
  Report Type: 
  Country: None (occurrence: None)
  Receive Date: 20120430
  Receipt Date: 20120420
  Transmission Date: 20120825
  Serious: Yes (Other)
  Sender: FDA-Public Use
  Company Number: US-BRISTOL-MYERS SQUIBB COMPANY-16387904

PATIENT
  Age: 92 Year
  Sex: Male
  Weight: 77 kg

DRUGS (4)
  1. PERCOCET [Suspect]
     Indication: PAIN
     Dosage: 1 DF = 5/325 QID
     Dates: start: 20111029
  2. PERCOCET [Suspect]
     Indication: PELVIC FRACTURE
     Dosage: 1 DF = 5/325 QID
     Dates: start: 20111029
  3. FINASTERIDE [Concomitant]
  4. COUMADIN [Suspect]
     Indication: PULMONARY EMBOLISM
     Route: 048
     Dates: start: 20111113, end: 20110101

REACTIONS (3)
  - WEIGHT INCREASED [None]
  - VASCULITIS [None]
  - CELLULITIS [None]
